FAERS Safety Report 5513298-3 (Version None)
Quarter: 2007Q4

REPORT INFORMATION
  Report Type: 
  Country: None (occurrence: None)
  Receive Date: 20071112
  Receipt Date: 20071031
  Transmission Date: 20080405
  Serious: Yes (Other)
  Sender: FDA-Public Use
  Company Number: US-PFIZER INC-2007092277

PATIENT
  Sex: Female

DRUGS (39)
  1. LYRICA [Suspect]
     Dates: start: 20060101, end: 20071001
  2. ADVAIR DISKUS 100/50 [Concomitant]
  3. ALBUTEROL [Concomitant]
  4. ALTACE [Concomitant]
  5. CLONAZEPAM [Concomitant]
  6. CYTOTEC [Concomitant]
  7. FLEXERIL [Concomitant]
  8. VITAMIN AND MINERAL PRENATAL SUPPLEMENT W/ FOLIC ACID CAP [Concomitant]
  9. LASIX [Concomitant]
  10. NAPROSYN [Concomitant]
  11. NEXIUM [Concomitant]
  12. NEXIUM [Concomitant]
  13. OMACOR [Concomitant]
  14. OMACOR [Concomitant]
  15. POTASSIUM CHLORIDE [Concomitant]
  16. POTASSIUM CHLORIDE [Concomitant]
  17. SOMA [Concomitant]
  18. SOMA [Concomitant]
  19. ZELNORM [Concomitant]
  20. ZELNORM [Concomitant]
  21. ZETIA [Concomitant]
  22. ZETIA [Concomitant]
  23. ACETYLSALICYLIC ACID SRT [Concomitant]
  24. ACETYLSALICYLIC ACID SRT [Concomitant]
  25. CALCIUM [Concomitant]
  26. CALCIUM [Concomitant]
  27. VITAMIN D [Concomitant]
  28. VITAMIN D [Concomitant]
  29. GLUCOSAMINE [Concomitant]
  30. GLUCOSAMINE [Concomitant]
  31. CHONDROITIN [Concomitant]
  32. MAGNESIUM SULFATE [Concomitant]
  33. ZINC [Concomitant]
  34. ASCORBIC ACID [Concomitant]
  35. DRUG, UNSPECIFIED [Concomitant]
  36. VITAMIN B-12 [Concomitant]
  37. LOTRISONE [Concomitant]
     Dosage: FREQ:AS NEEDED
  38. MECLIZINE [Concomitant]
     Dosage: FREQ:AS NEEDED
  39. VALIUM [Concomitant]
     Dosage: FREQ:AS NEEDED

REACTIONS (1)
  - OEDEMA PERIPHERAL [None]
